FAERS Safety Report 12272119 (Version 1)
Quarter: 2016Q2

REPORT INFORMATION
  Report Type: Spontaneous
  Country: US (occurrence: US)
  Receive Date: 20160415
  Receipt Date: 20160415
  Transmission Date: 20160815
  Serious: No
  Sender: FDA-Public Use
  Company Number: US-FERRINGPH-2015FE04977

PATIENT
  Age: 86 Year
  Sex: Male
  Weight: 93.42 kg

DRUGS (9)
  1. HYZAAR [Concomitant]
     Active Substance: HYDROCHLOROTHIAZIDE\LOSARTAN POTASSIUM
     Dosage: UNK, DAILY
  2. XTANDI [Concomitant]
     Active Substance: ENZALUTAMIDE
     Dosage: 40 UNK, DAILY
     Route: 048
  3. BABY ASPIRIN [Concomitant]
     Active Substance: ASPIRIN
  4. NEURONTIN [Concomitant]
     Active Substance: GABAPENTIN
     Dosage: 600 MG, 2 TIMES DAILY
  5. DOXAZOSIN [Concomitant]
     Active Substance: DOXAZOSIN\DOXAZOSIN MESYLATE
     Dosage: 2 MG, NIGHTLY
  6. PLAVIX [Concomitant]
     Active Substance: CLOPIDOGREL BISULFATE
     Dosage: 75 MG, DAILY
  7. ZOMETA [Concomitant]
     Active Substance: ZOLEDRONIC ACID
     Dosage: 3 MG, EVERY 3 MONTHS
  8. FIRMAGON [Suspect]
     Active Substance: DEGARELIX ACETATE
     Indication: PROSTATE CANCER
     Dosage: 80 MG, MONTHLY
     Route: 058
  9. TOPROL XL [Concomitant]
     Active Substance: METOPROLOL SUCCINATE
     Dosage: 50 MG, DAILY

REACTIONS (16)
  - Pollakiuria [Unknown]
  - Nocturia [Unknown]
  - Muscular weakness [Unknown]
  - Injection site swelling [Unknown]
  - Arthritis [Unknown]
  - Injection site induration [Recovered/Resolved]
  - Decreased appetite [Unknown]
  - Burning sensation [Unknown]
  - Hypoaesthesia [Unknown]
  - Insomnia related to another mental condition [Not Recovered/Not Resolved]
  - Stress [Not Recovered/Not Resolved]
  - Fatigue [Unknown]
  - Arthralgia [Unknown]
  - Micturition urgency [Unknown]
  - Constipation [None]
  - Diarrhoea [Unknown]

NARRATIVE: CASE EVENT DATE: 201512
